FAERS Safety Report 8679575 (Version 2)
Quarter: 2013Q2

REPORT INFORMATION
  Report Type: Spontaneous
  Country: US (occurrence: None)
  Receive Date: 20120406
  Receipt Date: 20120705
  Transmission Date: 20140414
  Serious: Yes (Hospitalization)
  Sender: FDA-Public Use
  Company Number: US-CYPR-2011-000100

PATIENT
  Age: 61 Year
  Sex: Male
  Weight: 104 kg

DRUGS (24)
  1. CLOPIDOGREL [Suspect]
     Indication: ANTIPLATELET THERAPY
     Route: 048
     Dates: start: 20101013, end: 20111002
  2. ASPIRIN [Suspect]
     Indication: CORONARY ARTERY DISEASE
     Dosage: 325 MG ORAL
     Route: 048
     Dates: start: 20091007
  3. LASIX [Concomitant]
  4. DAYPRO [Concomitant]
  5. SINGULAIR [Concomitant]
  6. NEURONTIN [Concomitant]
  7. LEXAPRO [Concomitant]
  8. ACTOS [Concomitant]
  9. METFORMIN HYDROCHLORIDE [Concomitant]
  10. TRICOR [Concomitant]
  11. ZETIA [Concomitant]
  12. LANOXIN [Concomitant]
  13. POTASSIUM CHLORIDE [Concomitant]
  14. NORFLEX [Concomitant]
  15. HUMIRA [Concomitant]
  16. ACEBUTOLOL HYDROCHLORIDE [Concomitant]
  17. ULTRAM [Concomitant]
  18. NITROGLYCERIN [Concomitant]
  19. BENICAR [Concomitant]
  20. AMARYL [Concomitant]
  21. CLONAZEPAM [Concomitant]
  22. CYPHER STENT (1) [Concomitant]
  23. CYPHER STENT (2) [Concomitant]
  24. CYPHER STENT (3) [Concomitant]

REACTIONS (7)
  - INTERVERTEBRAL DISCITIS [None]
  - Sepsis [None]
  - Renal failure acute [None]
  - Hyperkalaemia [None]
  - Pneumonia [None]
  - Wound [None]
  - Chest pain [None]
